FAERS Safety Report 9170651 (Version 1)
Quarter: 2013Q1

REPORT INFORMATION
  Report Type: Spontaneous
  Country: GB (occurrence: None)
  Receive Date: 20130312
  Receipt Date: 20130312
  Transmission Date: 20140127
  Serious: No
  Sender: FDA-Public Use
  Company Number: 2013000040

PATIENT
  Age: 83 Year
  Sex: Female

DRUGS (12)
  1. ACEON [Suspect]
     Indication: DRESSLER^S SYNDROME
     Route: 048
     Dates: start: 201204, end: 20130121
  2. ALORVASTATIN (ALORVASTATIN) [Concomitant]
  3. CLOPIDOGREL (CLOPIDOGREL) [Concomitant]
  4. FERROUS SULPHATE (FERROUS SULPHATE) [Concomitant]
  5. FUROSEMIDE (FUROSEMIDE) [Concomitant]
  6. GTN (GTN) [Concomitant]
  7. LANSOPRAZOLE (LANSOPRAZOLE) [Concomitant]
  8. PARACETAMOL (PARACETAMOL) [Concomitant]
  9. SALBUTAMOL (SALBUTAMOL) [Concomitant]
  10. SALMETEROL (SALMETEROL) [Concomitant]
  11. TILDIEM (DILITIAZEM HYDROCHLORIDE) [Concomitant]
  12. TIOTROPIUM BROMIDE (TIOTROPIUM BROMIDE) [Concomitant]

REACTIONS (1)
  - Coombs negative haemolytic anaemia [None]
